FAERS Safety Report 8260829-9 (Version None)
Quarter: 2012Q2

REPORT INFORMATION
  Report Type: 
  Country: None (occurrence: None)
  Receive Date: 20120402
  Receipt Date: 20120307
  Transmission Date: 20120825
  Serious: No
  Sender: FDA-Public Use
  Company Number: ACO_28565_2011

PATIENT
  Age: 49 Year
  Sex: Female
  Weight: 56.7 kg

DRUGS (10)
  1. BETHANECHOL CLORIDE (BETHANECHOL CHLORIDE) [Concomitant]
  2. LAMICTAL [Concomitant]
  3. TYSABRI (NATALIZUMAB) 11/23/2011 TO UNK [Concomitant]
  4. PREDNISONE (PREDNISONE) 12/30/2011 TO UNK [Concomitant]
  5. RESTORIL /00054301/(CHLORMEZANONE) 12/28/2011 TO UNK [Concomitant]
  6. AMPYRA [Suspect]
     Indication: ASTHENIA
     Dosage: 10 MG, Q 12 HRS, ORAL
     Route: 048
     Dates: start: 20111216
  7. AMPYRA [Suspect]
     Indication: GAIT DISTURBANCE
     Dosage: 10 MG, Q 12 HRS, ORAL
     Route: 048
     Dates: start: 20111216
  8. PROVIGIL [Concomitant]
  9. VALTREX [Concomitant]
  10. CYMBALTA [Concomitant]

REACTIONS (3)
  - NAUSEA [None]
  - PROGRESSIVE MULTIFOCAL LEUKOENCEPHALOPATHY [None]
  - ASTHENIA [None]
